FAERS Safety Report 9196429 (Version 1)
Quarter: 2013Q1

REPORT INFORMATION
  Report Type: Spontaneous
  Country: US (occurrence: None)
  Receive Date: 20120709
  Receipt Date: 20120709
  Transmission Date: 20140127
  Serious: No
  Sender: FDA-Public Use
  Company Number: 2012HGS-003536

PATIENT
  Age: 66 Year
  Sex: Female
  Weight: 66.68 kg

DRUGS (21)
  1. BENLYSTA [Suspect]
     Indication: SYSTEMIC LUPUS ERYTHEMATOSUS
     Dates: start: 20120119
  2. COREG [Concomitant]
  3. GABAPENTIN [Concomitant]
  4. PRIMIDON [Concomitant]
  5. ALPRAZOLAM [Concomitant]
  6. AGGRENOX [Concomitant]
  7. KLONOPIN [Concomitant]
  8. KLONOPIN [Concomitant]
  9. SYNTHROID [Concomitant]
  10. SERTRALINE HCL [Concomitant]
  11. FUROSEMIDE [Concomitant]
  12. KLOR-CON [Concomitant]
  13. HYDROXYCHLOROQUINE SULFATE [Concomitant]
  14. ENALAPRIL MALEATE [Concomitant]
  15. LIPITOR [Concomitant]
  16. PRILOSEC [Concomitant]
  17. MULTIVITAMIN [Concomitant]
  18. EVOXAC [Concomitant]
  19. PREDNISONE [Concomitant]
  20. ALENDRONATE SODIUM [Concomitant]
  21. FISH OIL [Concomitant]

REACTIONS (1)
  - Bronchitis [None]
